FAERS Safety Report 5295744-6 (Version None)
Quarter: 2007Q2

REPORT INFORMATION
  Report Type: 
  Country: None (occurrence: None)
  Receive Date: 20070413
  Receipt Date: 20070405
  Transmission Date: 20071010
  Serious: Yes (Other)
  Sender: FDA-Public Use
  Company Number: US-JNJFOC-20070306088

PATIENT
  Sex: Female
  Weight: 50.35 kg

DRUGS (22)
  1. DURAGESIC-100 [Suspect]
     Indication: BACK PAIN
     Route: 062
  2. MULTI-VITAMIN [Concomitant]
     Indication: NUTRITIONAL SUPPORT
     Route: 048
  3. PREMARIN [Concomitant]
     Indication: HORMONE REPLACEMENT THERAPY
     Route: 048
  4. PREMARIN [Concomitant]
     Indication: MENOPAUSE
     Route: 048
  5. KLONOPIN [Concomitant]
     Indication: PANIC DISORDER
     Route: 048
  6. KLONOPIN [Concomitant]
     Indication: ANXIETY
     Dosage: AS NEEDED
     Route: 048
  7. ZANAFLEX [Concomitant]
     Indication: MUSCLE RELAXANT THERAPY
     Route: 048
  8. ZANAFLEX [Concomitant]
     Indication: MUSCLE SPASMS
     Route: 048
  9. THEOPHYLLINE [Concomitant]
     Indication: CHRONIC OBSTRUCTIVE PULMONARY DISEASE
     Route: 048
  10. LIPITOR [Concomitant]
     Indication: BLOOD CHOLESTEROL INCREASED
     Dosage: AT BEDTIME
     Route: 048
  11. OXYBUTYNIN CHLORIDE [Concomitant]
     Indication: HYPERTONIC BLADDER
     Route: 048
  12. OXYBUTYNIN CHLORIDE [Concomitant]
     Indication: URINARY INCONTINENCE
     Dosage: AT BEDTIME
     Route: 048
  13. NEURONTIN [Concomitant]
     Indication: BIPOLAR DISORDER
     Dosage: 1 IN MORNING, 3 AT BEDTIME
     Route: 048
  14. COMBIVENT [Concomitant]
     Indication: CHRONIC OBSTRUCTIVE PULMONARY DISEASE
     Dosage: 2 DOSES = 2 PUFFS
     Route: 055
  15. AZMACORT [Concomitant]
     Indication: CHRONIC OBSTRUCTIVE PULMONARY DISEASE
     Dosage: 2 DOSES = 2 PUFFS
     Route: 055
  16. DICYCLOMINE [Concomitant]
     Indication: IRRITABLE BOWEL SYNDROME
     Route: 048
  17. DICYCLOMINE [Concomitant]
     Indication: GASTRITIS
     Route: 048
  18. LORTAB [Concomitant]
     Indication: PAIN
     Route: 048
  19. CALCIUM [Concomitant]
     Indication: NUTRITIONAL SUPPORT
     Route: 048
  20. PRILOSEC [Concomitant]
     Indication: GASTROOESOPHAGEAL REFLUX DISEASE
     Route: 048
  21. SEROQUEL [Concomitant]
     Indication: BIPOLAR DISORDER
     Route: 048
  22. HYDROCODONE [Concomitant]
     Indication: PAIN
     Dosage: AS NEEDED
     Route: 048

REACTIONS (7)
  - BONE NEOPLASM [None]
  - CARPAL TUNNEL SYNDROME [None]
  - DEVICE LEAKAGE [None]
  - HYPERSOMNIA [None]
  - OSTEOARTHRITIS [None]
  - PRURITUS [None]
  - WRONG TECHNIQUE IN DRUG USAGE PROCESS [None]
